FAERS Safety Report 19922724 (Version 1)
Quarter: 2021Q4

REPORT INFORMATION
  Report Type: Spontaneous
  Country: US (occurrence: US)
  Receive Date: 20211005
  Receipt Date: 20211005
  Transmission Date: 20220303
  Serious: No
  Sender: FDA-Public Use
  Company Number: None

PATIENT
  Age: 43 Year
  Sex: Female
  Weight: 84.7 kg

DRUGS (2)
  1. ERBITUX [Suspect]
     Active Substance: CETUXIMAB
     Dates: end: 20210901
  2. TAXOTERE [Suspect]
     Active Substance: DOCETAXEL
     Dates: end: 20210908

REACTIONS (7)
  - Infusion related reaction [None]
  - Dyspnoea [None]
  - Flushing [None]
  - Chest discomfort [None]
  - Back pain [None]
  - Dizziness [None]
  - Blood pressure increased [None]

NARRATIVE: CASE EVENT DATE: 20210908
